FAERS Safety Report 9778608 (Version 1)
Quarter: 2013Q4

REPORT INFORMATION
  Report Type: Spontaneous
  Country: US (occurrence: None)
  Receive Date: 20131219
  Receipt Date: 20131219
  Transmission Date: 20140711
  Serious: Yes (Other)
  Sender: FDA-Public Use
  Company Number: ADR-2013-02296

PATIENT
  Age: 55 Year
  Sex: Female

DRUGS (4)
  1. BACLOFEN [Suspect]
     Indication: PAIN
     Dosage: 46.721 MCG/ ML ; SEE B5
     Dates: start: 20131129
  2. CLONIDINE [Suspect]
     Dosage: 1.5184-4 MCG/ DAY; SEE B5
  3. BUPIVACAINE [Suspect]
     Dosage: 14.016 MG/DAY
  4. DILAUDID [Suspect]
     Dosage: 1.7520 MG / ML

REACTIONS (6)
  - Drug administration error [None]
  - Drug withdrawal syndrome [None]
  - Malaise [None]
  - Hypoaesthesia [None]
  - Paraesthesia [None]
  - Fall [None]
